FAERS Safety Report 12808429 (Version 3)
Quarter: 2016Q4

REPORT INFORMATION
  Report Type: Spontaneous
  Country: BR (occurrence: BR)
  Receive Date: 20161004
  Receipt Date: 20161221
  Transmission Date: 20170207
  Serious: No
  Sender: FDA-Public Use
  Company Number: BR-PFIZER INC-2016455496

PATIENT
  Age: 21 Year
  Sex: Female

DRUGS (2)
  1. FRONTAL [Concomitant]
     Active Substance: ALPRAZOLAM
     Dosage: UNK
  2. GEODON [Suspect]
     Active Substance: ZIPRASIDONE HYDROCHLORIDE\ZIPRASIDONE MESYLATE
     Indication: AUTISM
     Dosage: 120 MG, DAILY (ONE TABLET OF 90MG AT NIGHT AND ONE TABLET OF 40MG IN THE MORNING
     Dates: start: 2014, end: 20161020

REACTIONS (2)
  - Somnolence [Unknown]
  - Therapeutic response unexpected [Unknown]
